FAERS Safety Report 8548929-7 (Version None)
Quarter: 2012Q3

REPORT INFORMATION
  Report Type: 
  Country: None (occurrence: None)
  Receive Date: 20120730
  Receipt Date: 20120727
  Transmission Date: 20120928
  Serious: Yes (Other)
  Sender: FDA-Public Use
  Company Number: PHHY2012AU054981

PATIENT
  Sex: Female

DRUGS (2)
  1. TASIGNA [Suspect]
     Indication: HYPEREOSINOPHILIC SYNDROME
     Dosage: 400 MG, BID
     Route: 048
  2. TASIGNA [Suspect]
     Dosage: 200 MG, BID
     Route: 048

REACTIONS (7)
  - PRURITUS [None]
  - RASH [None]
  - MUCOSAL DRYNESS [None]
  - ABDOMINAL DISCOMFORT [None]
  - ARTHRALGIA [None]
  - EOSINOPHILIA [None]
  - MYALGIA [None]
